FAERS Safety Report 6189250-4 (Version None)
Quarter: 2009Q2

REPORT INFORMATION
  Report Type: 
  Country: None (occurrence: None)
  Receive Date: 20090513
  Receipt Date: 20090504
  Transmission Date: 20091009
  Serious: Yes (Other)
  Sender: FDA-Public Use
  Company Number: PHHY2009SE16744

PATIENT
  Age: 8 Year
  Sex: Male

DRUGS (3)
  1. RITALIN [Suspect]
     Indication: ATTENTION DEFICIT/HYPERACTIVITY DISORDER
     Dosage: 20 MG, QD
     Dates: start: 20071001
  2. RITALIN [Suspect]
     Dosage: 20 MG IN THE MORNING AND 20 MG AT LUNCH
  3. RITALIN [Suspect]
     Dosage: 30 MG IN THE MORNING AND 20 MG AT LUNCH
     Dates: start: 20081101, end: 20090301

REACTIONS (2)
  - DRUG INEFFECTIVE [None]
  - HALLUCINATION, AUDITORY [None]
